FAERS Safety Report 15531551 (Version 1)
Quarter: 2018Q4

REPORT INFORMATION
  Report Type: Spontaneous
  Country: FR (occurrence: FR)
  Receive Date: 20181019
  Receipt Date: 20181019
  Transmission Date: 20190205
  Serious: Yes (Other)
  Sender: FDA-Public Use
  Company Number: FR-TEVA-2018-FR-965915

PATIENT
  Age: 57 Year
  Sex: Female
  Weight: 84 kg

DRUGS (1)
  1. SODIUM PAMIDRONATE RATIOPHARM [Suspect]
     Active Substance: PAMIDRONATE DISODIUM
     Indication: FIBROUS DYSPLASIA OF BONE
     Route: 042
     Dates: start: 20170228, end: 20170228

REACTIONS (3)
  - Photopsia [Recovered/Resolved]
  - Malaise [Recovered/Resolved]
  - Headache [Recovered/Resolved]

NARRATIVE: CASE EVENT DATE: 20170228
